FAERS Safety Report 5928918-9 (Version None)
Quarter: 2008Q4

REPORT INFORMATION
  Report Type: 
  Country: None (occurrence: None)
  Receive Date: 20081024
  Receipt Date: 20081023
  Transmission Date: 20090506
  Serious: Yes (Death, Life-Threatening, Hospitalization)
  Sender: FDA-Public Use
  Company Number: PHHO2001ES06581

PATIENT
  Sex: Female
  Weight: 56 kg

DRUGS (4)
  1. NEORAL [Suspect]
     Indication: LIVER TRANSPLANT
     Dosage: NOT REPORTED
     Route: 048
     Dates: start: 20010713, end: 20010719
  2. PLACEBO PLACEBO [Suspect]
     Indication: LIVER TRANSPLANT
     Dosage: 20 MG, ONCE/SINGLE
     Route: 042
     Dates: start: 20010713, end: 20010713
  3. PLACEBO PLACEBO [Suspect]
     Dosage: 20 MG, ONCE/SINGLE
     Route: 042
     Dates: start: 20010717, end: 20010717
  4. STEROIDS NOS [Concomitant]
     Indication: LIVER TRANSPLANT

REACTIONS (18)
  - ALANINE AMINOTRANSFERASE INCREASED [None]
  - ANAEMIA [None]
  - ASCITES [None]
  - ASPARTATE AMINOTRANSFERASE INCREASED [None]
  - BLOOD BILIRUBIN INCREASED [None]
  - BLOOD SODIUM DECREASED [None]
  - CHOLESTASIS [None]
  - COMA [None]
  - JAUNDICE [None]
  - LEUKOCYTOSIS [None]
  - LIVER DISORDER [None]
  - MALNUTRITION [None]
  - MENTAL DISORDER [None]
  - NEUROTOXICITY [None]
  - PROTHROMBIN TIME PROLONGED [None]
  - PYREXIA [None]
  - RENAL FAILURE [None]
  - SEPSIS [None]
